FAERS Safety Report 7968744-2 (Version None)
Quarter: 2011Q4

REPORT INFORMATION
  Report Type: 
  Country: None (occurrence: None)
  Receive Date: 20111122
  Receipt Date: 20110809
  Transmission Date: 20120403
  Serious: No
  Sender: FDA-Public Use
  Company Number: PHHY2011US69131

PATIENT
  Age: 27 Year
  Sex: Female

DRUGS (1)
  1. GILENYA [Suspect]
     Indication: MULTIPLE SCLEROSIS
     Dosage: 0.5 MG, QD, ORAL
     Route: 048
     Dates: start: 20110722

REACTIONS (6)
  - MUSCULAR WEAKNESS [None]
  - HEADACHE [None]
  - SOMNOLENCE [None]
  - HYPOAESTHESIA [None]
  - FATIGUE [None]
  - PHOTOPHOBIA [None]
